FAERS Safety Report 18832844 (Version 1)
Quarter: 2021Q1

REPORT INFORMATION
  Report Type: Other
  Country: CA (occurrence: CA)
  Receive Date: 20210203
  Receipt Date: 20210203
  Transmission Date: 20210419
  Serious: Yes (Death)
  Sender: FDA-Public Use
  Company Number: CA-APOTEX-2021AP002118

PATIENT
  Age: 5 Month
  Sex: Female

DRUGS (13)
  1. PREDNISONE. [Suspect]
     Active Substance: PREDNISONE
     Indication: OFF LABEL USE
     Dosage: UNK
     Route: 065
  2. TACROLIMUS. [Suspect]
     Active Substance: TACROLIMUS
     Indication: OFF LABEL USE
  3. ANTITHYMOCYTE IMMUNOGLOBULIN [Suspect]
     Active Substance: THYMOCYTE IMMUNE GLOBULIN NOS
     Indication: OFF LABEL USE
  4. DOCETAXEL. [Concomitant]
     Active Substance: DOCETAXEL
     Indication: OFF LABEL USE
     Dosage: UNK
     Route: 065
  5. MYCOPHENOLATE MOFETIL. [Suspect]
     Active Substance: MYCOPHENOLATE MOFETIL
     Indication: OFF LABEL USE
  6. PREDNISONE. [Suspect]
     Active Substance: PREDNISONE
     Indication: PROPHYLAXIS AGAINST TRANSPLANT REJECTION
  7. MYCOPHENOLATE MOFETIL. [Suspect]
     Active Substance: MYCOPHENOLATE MOFETIL
     Indication: PROPHYLAXIS AGAINST TRANSPLANT REJECTION
     Dosage: UNK
     Route: 065
  8. GEMCITABINE. [Concomitant]
     Active Substance: GEMCITABINE
     Indication: OFF LABEL USE
     Dosage: UNK
     Route: 065
  9. TACROLIMUS. [Suspect]
     Active Substance: TACROLIMUS
     Indication: PROPHYLAXIS AGAINST TRANSPLANT REJECTION
     Dosage: UNK
     Route: 065
  10. GANCICLOVIR. [Suspect]
     Active Substance: GANCICLOVIR
     Indication: OFF LABEL USE
     Dosage: UNK
     Route: 065
  11. SIROLIMUS. [Concomitant]
     Active Substance: SIROLIMUS
     Indication: OFF LABEL USE
     Dosage: UNK
     Route: 065
  12. ANTITHYMOCYTE IMMUNOGLOBULIN [Suspect]
     Active Substance: THYMOCYTE IMMUNE GLOBULIN NOS
     Indication: PROPHYLAXIS AGAINST TRANSPLANT REJECTION
     Dosage: UNK
     Route: 065
  13. GANCICLOVIR. [Suspect]
     Active Substance: GANCICLOVIR
     Indication: EPSTEIN-BARR VIRUS INFECTION

REACTIONS (4)
  - Intentional product use issue [Fatal]
  - Epstein-Barr virus infection [Fatal]
  - Infected neoplasm [Fatal]
  - Off label use [Fatal]
